FAERS Safety Report 4791850-0 (Version None)
Quarter: 2005Q4

REPORT INFORMATION
  Report Type: 
  Country: None (occurrence: None)
  Receive Date: 20051007
  Receipt Date: 20050930
  Transmission Date: 20060501
  Serious: Yes (Other)
  Sender: FDA-Public Use
  Company Number: JP-JNJFOC-20051000312

PATIENT

DRUGS (3)
  1. RISPERDAL [Suspect]
     Indication: DRUG USE FOR UNKNOWN INDICATION
     Route: 048
  2. ALLOPURINOL [Concomitant]
  3. ^MULTIPLE^ CONCOMITANT MEDICATIONS [Concomitant]

REACTIONS (1)
  - STEVENS-JOHNSON SYNDROME [None]
